FAERS Safety Report 5716006-6 (Version None)
Quarter: 2008Q2

REPORT INFORMATION
  Report Type: 
  Country: None (occurrence: None)
  Receive Date: 20080422
  Receipt Date: 20080129
  Transmission Date: 20081010
  Serious: No
  Sender: FDA-Public Use
  Company Number: APP200800064

PATIENT
  Age: 78 Year
  Sex: Female
  Weight: 65.7716 kg

DRUGS (2)
  1. HEPARIN SODIUM INJECTION [Suspect]
     Dosage: 100 UNITS/HOUR, INTRAVENOUS
     Route: 042
     Dates: start: 20080128, end: 20080129
  2. HEPARIN SODIUM INJECTION [Suspect]

REACTIONS (2)
  - COAGULATION TIME PROLONGED [None]
  - HAEMORRHAGE [None]
